FAERS Safety Report 8122325-9 (Version None)
Quarter: 2012Q1

REPORT INFORMATION
  Report Type: 
  Country: None (occurrence: None)
  Receive Date: 20120206
  Receipt Date: 20120123
  Transmission Date: 20120608
  Serious: Yes (Death, Other)
  Sender: FDA-Public Use
  Company Number: JPI-P-014568

PATIENT
  Age: 60 Year
  Sex: Female

DRUGS (2)
  1. XYREM [Suspect]
     Indication: NARCOLEPSY
     Dosage: 4.5 GM (2.25 GM, 2 IN 1 D) ORAL;  (UNKNOWN), ORAL; 9 GM (4.5 GM, 2 IN 1 D), ORAL
     Route: 048
     Dates: start: 20100818, end: 20110408
  2. XYREM [Suspect]
     Indication: NARCOLEPSY
     Dosage: 4.5 GM (2.25 GM, 2 IN 1 D) ORAL;  (UNKNOWN), ORAL; 9 GM (4.5 GM, 2 IN 1 D), ORAL
     Route: 048
     Dates: start: 20090831

REACTIONS (10)
  - INFLAMMATION [None]
  - ARTERIAL THROMBOSIS [None]
  - CARDIAC ARREST [None]
  - FALL [None]
  - HEAD INJURY [None]
  - HAEMORRHAGE [None]
  - EMBOLISM [None]
  - DEVICE RELATED INFECTION [None]
  - RENAL HAEMORRHAGE [None]
  - POST PROCEDURAL HAEMATOMA [None]
